FAERS Safety Report 15369170 (Version 2)
Quarter: 2019Q1

REPORT INFORMATION
  Report Type: Spontaneous
  Country: FR (occurrence: FR)
  Receive Date: 20180911
  Receipt Date: 20190125
  Transmission Date: 20190417
  Serious: Yes (Other)
  Sender: FDA-Public Use
  Company Number: FR-TEVA-2018-FR-953144

PATIENT
  Age: 31 Year
  Sex: Female

DRUGS (1)
  1. DIAZEPAM. [Suspect]
     Active Substance: DIAZEPAM
     Indication: CHEMICAL SUBMISSION
     Route: 048
     Dates: start: 20170217

REACTIONS (1)
  - Victim of chemical submission [Recovered/Resolved]

NARRATIVE: CASE EVENT DATE: 20170217
